FAERS Safety Report 11476136 (Version 4)
Quarter: 2022Q1

REPORT INFORMATION
  Report Type: Report from Study
  Country: JP (occurrence: JP)
  Receive Date: 20150909
  Receipt Date: 20220214
  Transmission Date: 20220423
  Serious: Yes (Other)
  Sender: FDA-Public Use
  Company Number: JP-SHIRE-JP201511107AA

PATIENT
  Age: 74 Year
  Sex: Female
  Weight: 43 kg

DRUGS (14)
  1. ANAGRELIDE [Suspect]
     Active Substance: ANAGRELIDE
     Indication: Essential thrombocythaemia
     Dosage: 1 MILLIGRAM /DAY
     Route: 048
     Dates: start: 20110307, end: 2011
  2. ANAGRELIDE [Suspect]
     Active Substance: ANAGRELIDE
     Dosage: 2 MILLIGRAM /DAY
     Route: 048
     Dates: start: 2011, end: 2013
  3. ANAGRELIDE [Suspect]
     Active Substance: ANAGRELIDE
     Dosage: 1.5 MILLIGRAM /DAY
     Route: 048
     Dates: start: 2013, end: 2014
  4. ANAGRELIDE [Suspect]
     Active Substance: ANAGRELIDE
     Dosage: 1 MG/DAY ON EVEN DAYS AND 1.5 MG/DAY ON ODD DAYS (ALTERNATELY ADMINISTERED)
     Route: 048
     Dates: start: 20150206, end: 20150514
  5. ANAGRELIDE [Suspect]
     Active Substance: ANAGRELIDE
     Dosage: 1 MILLIGRAM /DAY
     Route: 048
     Dates: start: 20150515, end: 2018
  6. ASPIRIN [Suspect]
     Active Substance: ASPIRIN
     Indication: Essential thrombocythaemia
     Dosage: UNK
     Route: 048
     Dates: start: 2004
  7. HYDREA [Concomitant]
     Active Substance: HYDROXYUREA
     Indication: Essential thrombocythaemia
     Dosage: 1000-1500 MG/DAY
     Route: 048
     Dates: start: 2004, end: 20110306
  8. HYDREA [Concomitant]
     Active Substance: HYDROXYUREA
     Dosage: 500 MILLIGRAM, QOD
     Route: 048
     Dates: start: 20150403, end: 20150430
  9. HYDREA [Concomitant]
     Active Substance: HYDROXYUREA
     Dosage: 500 MILLIGRAM, QD
     Route: 048
     Dates: start: 20150501, end: 20150723
  10. HYDREA [Concomitant]
     Active Substance: HYDROXYUREA
     Dosage: 500 MG/DAY ON DAY1, 2; 1000 MG/DAY ON DAY3, OTHER (QUAQUE 3 DAYS)
     Route: 048
     Dates: start: 20150724
  11. HYDREA [Concomitant]
     Active Substance: HYDROXYUREA
     Dosage: 500 MILLIGRAM, 4/WEEK
     Dates: end: 2018
  12. LEVOTHYROXINE SODIUM [Concomitant]
     Active Substance: LEVOTHYROXINE SODIUM
     Indication: Product used for unknown indication
     Dosage: UNK, UNKNOWN
     Route: 065
     Dates: start: 20140516
  13. ISOSORBIDE DINITRATE [Concomitant]
     Active Substance: ISOSORBIDE DINITRATE
     Indication: Product used for unknown indication
     Dosage: UNK, UNKNOWN
     Route: 062
     Dates: start: 20131128
  14. RUXOLITINIB PHOSPHATE [Concomitant]
     Active Substance: RUXOLITINIB PHOSPHATE
     Indication: Product used for unknown indication
     Dosage: UNK
     Route: 065

REACTIONS (4)
  - Chronic kidney disease [Recovering/Resolving]
  - Nephrogenic anaemia [Not Recovered/Not Resolved]
  - Myelofibrosis [Unknown]
  - Hypertension [Recovering/Resolving]

NARRATIVE: CASE EVENT DATE: 20150515
